FAERS Safety Report 9995246 (Version 2)
Quarter: 2014Q1

REPORT INFORMATION
  Report Type: Spontaneous
  Country: IT (occurrence: None)
  Receive Date: 20140306
  Receipt Date: 20140314
  Transmission Date: 20141002
  Serious: Yes (Other)
  Sender: FDA-Public Use
  Company Number: 2206105

PATIENT
  Age: 30 Year
  Sex: Female
  Weight: 68 kg

DRUGS (2)
  1. PACLITAXEL [Suspect]
     Indication: BREAST CANCER
     Dosage: 150 MG MILLIGRAM(S), CYCLICAL, INTRAVENOUS
     Route: 042
     Dates: start: 20140203, end: 20140203
  2. HERCEPTIN [Concomitant]
     Route: 042
     Dates: start: 20140203, end: 20140203

REACTIONS (3)
  - Hot flush [None]
  - Erythema [None]
  - Flushing [None]
